FAERS Safety Report 7959750-2 (Version None)
Quarter: 2011Q4

REPORT INFORMATION
  Report Type: 
  Country: None (occurrence: None)
  Receive Date: 20111206
  Receipt Date: 20111114
  Transmission Date: 20120403
  Serious: Yes (Other)
  Sender: FDA-Public Use
  Company Number: JP-GLAXOSMITHKLINE-B0763431A

PATIENT
  Sex: Male

DRUGS (5)
  1. LAMICTAL [Suspect]
     Indication: BIPOLAR DISORDER
     Dosage: 25MG PER DAY
     Route: 048
     Dates: start: 20111007, end: 20111027
  2. CANDESARTAN CILEXETIL [Concomitant]
     Indication: HYPERTENSION
     Dosage: 8MG PER DAY
     Route: 048
     Dates: start: 20100101
  3. ROHYPNOL [Concomitant]
     Indication: SLEEP DISORDER
     Dosage: 2MG PER DAY
     Route: 048
     Dates: start: 20091201
  4. LITHIUM CARBONATE [Concomitant]
     Indication: BIPOLAR I DISORDER
     Dosage: 800MG PER DAY
     Route: 048
     Dates: start: 20091201
  5. ADALAT [Concomitant]
     Indication: HYPERTENSION
     Dosage: 80MG PER DAY
     Route: 048
     Dates: start: 20100101

REACTIONS (5)
  - DRUG ERUPTION [None]
  - DYSPNOEA [None]
  - RASH [None]
  - BLOOD PRESSURE INCREASED [None]
  - ERYTHEMA [None]
